FAERS Safety Report 20074153 (Version 1)
Quarter: 2021Q4

REPORT INFORMATION
  Report Type: Spontaneous
  Country: FR (occurrence: FR)
  Receive Date: 20211116
  Receipt Date: 20211116
  Transmission Date: 20220303
  Serious: Yes (Hospitalization)
  Sender: FDA-Public Use
  Company Number: None

PATIENT
  Age: 75 Year
  Sex: Male
  Weight: 61.6 kg

DRUGS (8)
  1. SPIRONOLACTONE [Suspect]
     Active Substance: SPIRONOLACTONE
     Indication: Ascites
     Dosage: 1 DOSAGE FORM, QD (75MG)
     Route: 048
     Dates: start: 202106
  2. FUROSEMIDE [Concomitant]
     Active Substance: FUROSEMIDE
     Dosage: UNK
  3. PROPRANOLOL [Concomitant]
     Active Substance: PROPRANOLOL HYDROCHLORIDE
     Dosage: UNK
  4. LOVENOX [Concomitant]
     Active Substance: ENOXAPARIN SODIUM
     Dosage: UNK
  5. LANSOPRAZOLE [Concomitant]
     Active Substance: LANSOPRAZOLE
     Dosage: UNK
  6. OXAZEPAM [Concomitant]
     Active Substance: OXAZEPAM
     Dosage: UNK
  7. COMIRNATY [Concomitant]
     Active Substance: TOZINAMERAN
     Indication: COVID-19 immunisation
     Dosage: 1 DOSAGE FORM
     Route: 030
     Dates: start: 202105
  8. DUPHALAC                           /00163401/ [Concomitant]
     Dosage: UNK

REACTIONS (1)
  - Limbic encephalitis [Not Recovered/Not Resolved]

NARRATIVE: CASE EVENT DATE: 20210723
